FAERS Safety Report 19965995 (Version 1)
Quarter: 2021Q4

REPORT INFORMATION
  Report Type: Spontaneous
  Country: IT (occurrence: IT)
  Receive Date: 20211019
  Receipt Date: 20211019
  Transmission Date: 20220303
  Serious: Yes (Hospitalization, Other)
  Sender: FDA-Public Use
  Company Number: IT-ABBVIE-21K-083-4119088-00

PATIENT
  Age: 30 Year
  Sex: Female

DRUGS (3)
  1. VALPROATE SODIUM [Suspect]
     Active Substance: VALPROATE SODIUM
     Indication: Product used for unknown indication
     Route: 048
     Dates: start: 20190227, end: 20190227
  2. TAVOR [Concomitant]
     Indication: Bulimia nervosa
  3. FLUOXETINE [Concomitant]
     Active Substance: FLUOXETINE HYDROCHLORIDE
     Indication: Bulimia nervosa

REACTIONS (5)
  - Mood altered [Recovering/Resolving]
  - Crying [Recovering/Resolving]
  - Drug abuse [Unknown]
  - Intentional product misuse [Unknown]
  - Somnolence [Recovering/Resolving]

NARRATIVE: CASE EVENT DATE: 20190227
